FAERS Safety Report 9019346 (Version 1)
Quarter: 2013Q1

REPORT INFORMATION
  Report Type: Spontaneous
  Country: US (occurrence: US)
  Receive Date: 20130118
  Receipt Date: 20130118
  Transmission Date: 20140127
  Serious: Yes (Death, Other)
  Sender: FDA-Public Use
  Company Number: US-UCBSA-075304

PATIENT
  Age: 53 Year
  Sex: Female

DRUGS (3)
  1. ACETAMINOPHEN\HYDROCODONE [Suspect]
     Route: 048
  2. ACETAMINOPHEN/DIPHENHYDRAMINE [Suspect]
     Route: 048
  3. TRAZODONE [Suspect]
     Route: 048

REACTIONS (1)
  - Completed suicide [Fatal]
